FAERS Safety Report 7662354-2 (Version None)
Quarter: 2011Q3

REPORT INFORMATION
  Report Type: 
  Country: None (occurrence: None)
  Receive Date: 20110805
  Receipt Date: 20101227
  Transmission Date: 20111222
  Serious: No
  Sender: FDA-Public Use
  Company Number: US-ABBOTT-10P-163-0694486-00

PATIENT
  Sex: Female
  Weight: 70.37 kg

DRUGS (4)
  1. MULTI-VITAMIN [Concomitant]
     Indication: VITAMIN SUPPLEMENTATION
     Route: 048
  2. CRESTOR [Concomitant]
     Indication: PRODUCT USED FOR UNKNOWN INDICATION
     Route: 048
     Dates: start: 20090101
  3. ASPIRIN [Concomitant]
     Indication: PRODUCT USED FOR UNKNOWN INDICATION
     Route: 048
  4. NIASPAN [Suspect]
     Indication: HIGH DENSITY LIPOPROTEIN DECREASED
     Route: 048
     Dates: start: 20101220

REACTIONS (8)
  - CHILLS [None]
  - DIARRHOEA [None]
  - BURNING SENSATION [None]
  - CYANOSIS [None]
  - DIZZINESS [None]
  - HEADACHE [None]
  - NAUSEA [None]
  - PARAESTHESIA [None]
